FAERS Safety Report 14146608 (Version 1)
Quarter: 2017Q4

REPORT INFORMATION
  Report Type: Spontaneous
  Country: US (occurrence: US)
  Receive Date: 20171031
  Receipt Date: 20171031
  Transmission Date: 20180321
  Serious: No
  Sender: FDA-Public Use
  Company Number: US-BAUSCH-BL-2016-030305

PATIENT
  Age: 67 Year
  Sex: Female

DRUGS (4)
  1. BEPREVE [Suspect]
     Active Substance: BEPOTASTINE BESILATE
     Indication: CONJUNCTIVITIS
     Dosage: IN BOTH EYES DAILY
     Route: 047
     Dates: start: 20161011, end: 2016
  2. RETAINE MGD [Concomitant]
     Active Substance: LIGHT MINERAL OIL\MINERAL OIL
     Indication: PRODUCT USED FOR UNKNOWN INDICATION
     Route: 047
  3. REFRESH P.M. [Concomitant]
     Active Substance: MINERAL OIL\PETROLATUM
     Indication: PRODUCT USED FOR UNKNOWN INDICATION
     Route: 047
  4. BEPREVE [Suspect]
     Active Substance: BEPOTASTINE BESILATE
     Indication: EYE ALLERGY
     Dosage: BOTH EYES DAILY.
     Route: 047
     Dates: start: 201611

REACTIONS (4)
  - Lacrimation increased [Recovering/Resolving]
  - Ocular hyperaemia [Recovering/Resolving]
  - Eye irritation [Recovering/Resolving]
  - Visual impairment [Recovering/Resolving]

NARRATIVE: CASE EVENT DATE: 20161124
